FAERS Safety Report 9504230 (Version 1)
Quarter: 2013Q3

REPORT INFORMATION
  Report Type: Spontaneous
  Country: US (occurrence: US)
  Receive Date: 20130906
  Receipt Date: 20130906
  Transmission Date: 20140515
  Serious: Yes (Other)
  Sender: FDA-Public Use
  Company Number: US-GLAXOSMITHKLINE-A1040471A

PATIENT
  Age: 76 Year
  Sex: Female

DRUGS (1)
  1. FLOVENT [Suspect]
     Indication: DYSPNOEA
     Route: 055
     Dates: start: 20100811

REACTIONS (1)
  - Hospitalisation [Unknown]
